FAERS Safety Report 11652926 (Version 1)
Quarter: 2015Q4

REPORT INFORMATION
  Report Type: Spontaneous
  Country: US (occurrence: None)
  Receive Date: 20151021
  Receipt Date: 20151021
  Transmission Date: 20160304
  Serious: Yes (Other)
  Sender: FDA-Public Use
  Company Number: US2015129892

PATIENT
  Age: 72 Year
  Sex: Female

DRUGS (1)
  1. TUMS SMOOTHIES [Suspect]
     Active Substance: CALCIUM CARBONATE
     Indication: DYSPEPSIA
     Dates: start: 2014

REACTIONS (5)
  - Gastric operation [None]
  - Dyspepsia [None]
  - Gastric disorder [None]
  - Salivary hypersecretion [None]
  - Gastric ulcer [None]
